FAERS Safety Report 17970714 (Version 1)
Quarter: 2020Q3

REPORT INFORMATION
  Report Type: Spontaneous
  Country: FR (occurrence: FR)
  Receive Date: 20200701
  Receipt Date: 20200701
  Transmission Date: 20201103
  Serious: Yes (Hospitalization)
  Sender: FDA-Public Use
  Company Number: NVSC2020FR180857

PATIENT
  Age: 62 Year
  Sex: Male

DRUGS (11)
  1. SPIRONOLACTONE. [Suspect]
     Active Substance: SPIRONOLACTONE
     Indication: CARDIOMYOPATHY
     Dosage: 1 DF, QD
     Route: 048
     Dates: end: 20190529
  2. TAHOR [Concomitant]
     Active Substance: ATORVASTATIN CALCIUM
     Indication: PRODUCT USED FOR UNKNOWN INDICATION
     Dosage: UNK
     Route: 065
  3. ELIQUIS [Concomitant]
     Active Substance: APIXABAN
     Indication: PRODUCT USED FOR UNKNOWN INDICATION
     Dosage: UNK
     Route: 065
  4. BISOPROLOL FUMARATE. [Suspect]
     Active Substance: BISOPROLOL FUMARATE
     Indication: CARDIOMYOPATHY
     Dosage: 7.5 MG, QD (2.5MG ? 0 ? 5MG)
     Route: 048
     Dates: start: 201905
  5. KARDEGIC [Suspect]
     Active Substance: ASPIRIN DL-LYSINE
     Indication: PROPHYLAXIS
     Dosage: 1 DF, QD(75 MG, POUDRE POUR SOLUTION BUVABLE EN SACHET?DOSE)
     Route: 048
     Dates: start: 201905
  6. AMIODARONE [Concomitant]
     Active Substance: AMIODARONE
     Indication: PRODUCT USED FOR UNKNOWN INDICATION
     Dosage: UNK
     Route: 065
  7. FUROSEMIDE. [Suspect]
     Active Substance: FUROSEMIDE
     Indication: CARDIOMYOPATHY
     Dosage: 1 DF, QD
     Route: 048
     Dates: start: 201905, end: 20190529
  8. STILNOX [Suspect]
     Active Substance: ZOLPIDEM TARTRATE
     Indication: CARDIOMYOPATHY
     Dosage: 1 DF, QD
     Route: 048
     Dates: end: 20190529
  9. RAMIPRIL. [Suspect]
     Active Substance: RAMIPRIL
     Indication: CARDIOMYOPATHY
     Dosage: 1 DF, QD
     Route: 048
     Dates: start: 201905, end: 20190529
  10. ACIDE FOLIQUE [Suspect]
     Active Substance: FOLIC ACID
     Indication: CARDIOMYOPATHY
     Dosage: 1 DF, QD
     Route: 048
     Dates: start: 201905, end: 20190530
  11. PANTOPRAZOLE [Concomitant]
     Active Substance: PANTOPRAZOLE
     Indication: PRODUCT USED FOR UNKNOWN INDICATION
     Dosage: UNK
     Route: 065

REACTIONS (2)
  - Hyperkalaemia [Recovered/Resolved]
  - Acute kidney injury [Recovered/Resolved]

NARRATIVE: CASE EVENT DATE: 20190529
